FAERS Safety Report 12483616 (Version 2)
Quarter: 2018Q2

REPORT INFORMATION
  Report Type: Spontaneous
  Country: US (occurrence: US)
  Receive Date: 20160621
  Receipt Date: 20180518
  Transmission Date: 20180711
  Serious: Yes (Hospitalization, Other)
  Sender: FDA-Public Use
  Company Number: US-BRISTOL-MYERS SQUIBB COMPANY-BMS-2016-046941

PATIENT
  Sex: Female
  Weight: 111.1 kg

DRUGS (2)
  1. SYNTHROID [Concomitant]
     Active Substance: LEVOTHYROXINE SODIUM
     Indication: PRODUCT USED FOR UNKNOWN INDICATION
     Route: 065
  2. ELIQUIS [Suspect]
     Active Substance: APIXABAN
     Indication: PULMONARY EMBOLISM
     Dosage: 5 MG, BID
     Route: 065
     Dates: start: 20150624

REACTIONS (14)
  - Incontinence [Unknown]
  - Depression [Unknown]
  - Dyspnoea [Unknown]
  - Fatigue [Unknown]
  - Muscular weakness [Unknown]
  - Head injury [Unknown]
  - Nephrolithiasis [Unknown]
  - Fall [Unknown]
  - Loss of consciousness [Unknown]
  - Feeling abnormal [Unknown]
  - Diplopia [Unknown]
  - Hyperhidrosis [Unknown]
  - Hypersomnia [Unknown]
  - Hypoaesthesia [Unknown]

NARRATIVE: CASE EVENT DATE: 201509
